FAERS Safety Report 8630381 (Version 3)
Quarter: 2014Q2

REPORT INFORMATION
  Report Type: Spontaneous
  Country: US (occurrence: US)
  Receive Date: 20120622
  Receipt Date: 20140422
  Transmission Date: 20141212
  Serious: Yes (Disabling, Other)
  Sender: FDA-Public Use
  Company Number: US-ASTRAZENECA-2012SE36345

PATIENT
  Age: 56 Year
  Sex: Female

DRUGS (15)
  1. NEXIUM [Suspect]
     Indication: ULCER
     Route: 048
  2. NEXIUM [Suspect]
     Indication: GASTRIC DISORDER
     Route: 048
  3. NEXIUM [Suspect]
     Indication: ULCER
     Route: 048
     Dates: start: 20060513
  4. NEXIUM [Suspect]
     Indication: GASTRIC DISORDER
     Route: 048
     Dates: start: 20060513
  5. PRILOSEC [Suspect]
     Route: 048
  6. PREVACID [Concomitant]
  7. ZANTAC [Concomitant]
  8. PEPCID [Concomitant]
  9. TUMS [Concomitant]
  10. PEPTO BISMOL [Concomitant]
  11. ALPRAZOLAM [Concomitant]
     Dosage: 1 MG EVERY 4 TO SIX HOURS
     Route: 048
     Dates: start: 20110719
  12. SEROQUEL [Concomitant]
     Route: 048
     Dates: start: 20110809
  13. SUMATRIPTAN [Concomitant]
     Indication: MIGRAINE
     Route: 048
     Dates: start: 20110912
  14. MECLIZINE [Concomitant]
     Indication: DIZZINESS
     Dosage: 25 MG TAB 01 TO 02 TAB EVERY SIX HOUR
     Route: 048
     Dates: start: 20101224
  15. NAPROXEN [Concomitant]
     Route: 048
     Dates: start: 20110615

REACTIONS (21)
  - Cervical vertebral fracture [Unknown]
  - Wrist fracture [Unknown]
  - Ulcer haemorrhage [Unknown]
  - Haematemesis [Unknown]
  - Cerebrovascular accident [Unknown]
  - Mental disorder [Unknown]
  - Bone disorder [Unknown]
  - Fall [Unknown]
  - Joint injury [Unknown]
  - Osteoporosis [Unknown]
  - Spinal fracture [Unknown]
  - Upper limb fracture [Unknown]
  - Calcium deficiency [Unknown]
  - Arthritis [Unknown]
  - Rheumatoid arthritis [Unknown]
  - Hypothyroidism [Unknown]
  - Vitamin D deficiency [Unknown]
  - Foot fracture [Unknown]
  - Osteoarthritis [Unknown]
  - Rib fracture [Unknown]
  - Depression [Unknown]
